FAERS Safety Report 4711546-0 (Version None)
Quarter: 2005Q3

REPORT INFORMATION
  Report Type: 
  Country: None (occurrence: None)
  Receive Date: 20050708
  Receipt Date: 20050708
  Transmission Date: 20060218
  Serious: Yes (Other)
  Sender: FDA-Public Use
  Company Number: None

PATIENT
  Age: 84 Year
  Sex: Male
  Weight: 68 kg

DRUGS (1)
  1. TRAVATAN [Suspect]
     Indication: GLAUCOMA
     Dosage: OU  HS, 1 DR OWNS, OPHTHALM
     Route: 047
     Dates: start: 20050505, end: 20050613

REACTIONS (2)
  - CONJUNCTIVITIS [None]
  - HYPERSENSITIVITY [None]
